FAERS Safety Report 4771425-X (Version None)
Quarter: 2005Q3

REPORT INFORMATION
  Report Type: 
  Country: None (occurrence: None)
  Receive Date: 20050915
  Receipt Date: 20050825
  Transmission Date: 20060218
  Serious: Yes (Hospitalization, Other)
  Sender: FDA-Public Use
  Company Number: USA0508106616

PATIENT
  Age: 47 Year
  Sex: Male

DRUGS (3)
  1. CIALIS [Suspect]
     Indication: ERECTILE DYSFUNCTION
     Dosage: 20 MG/2 WEEK
     Dates: start: 20050101
  2. CELEBREX [Concomitant]
  3. SULFASALAZINE [Concomitant]

REACTIONS (1)
  - PROSTATE CANCER [None]
